FAERS Safety Report 7760493-9 (Version None)
Quarter: 2011Q3

REPORT INFORMATION
  Report Type: 
  Country: None (occurrence: None)
  Receive Date: 20110919
  Receipt Date: 20110914
  Transmission Date: 20111222
  Serious: Yes (Hospitalization, Other)
  Sender: FDA-Public Use
  Company Number: FR-ABBOTT-11P-056-0848476-00

PATIENT
  Sex: Male

DRUGS (6)
  1. DEPAKOTE [Suspect]
     Indication: BIPOLAR DISORDER
     Dates: end: 20110510
  2. MIRTAZAPINE [Suspect]
     Indication: PRODUCT USED FOR UNKNOWN INDICATION
  3. REVIA [Suspect]
     Indication: PRODUCT USED FOR UNKNOWN INDICATION
  4. EFFEXOR [Suspect]
     Indication: PRODUCT USED FOR UNKNOWN INDICATION
  5. CLONAZEPAM [Suspect]
     Indication: PRODUCT USED FOR UNKNOWN INDICATION
  6. ZOLPIDEM [Suspect]
     Indication: PRODUCT USED FOR UNKNOWN INDICATION

REACTIONS (4)
  - HEPATITIS CHOLESTATIC [None]
  - INTENTIONAL OVERDOSE [None]
  - CHOLANGITIS ACUTE [None]
  - CYTOLYTIC HEPATITIS [None]
